FAERS Safety Report 8271407-X (Version None)
Quarter: 2012Q2

REPORT INFORMATION
  Report Type: 
  Country: None (occurrence: None)
  Receive Date: 20120410
  Receipt Date: 20120403
  Transmission Date: 20120825
  Serious: Yes (Hospitalization)
  Sender: FDA-Public Use
  Company Number: PHEH2012US007563

PATIENT
  Sex: Female

DRUGS (1)
  1. GILENYA [Suspect]
     Dosage: UNK

REACTIONS (10)
  - SKIN ULCER [None]
  - PAIN IN EXTREMITY [None]
  - IMPAIRED HEALING [None]
  - CELLULITIS [None]
  - INCONTINENCE [None]
  - MEDICAL DEVICE COMPLICATION [None]
  - OEDEMA PERIPHERAL [None]
  - HEADACHE [None]
  - BEDRIDDEN [None]
  - CONSTIPATION [None]
